FAERS Safety Report 7577860-9 (Version None)
Quarter: 2011Q2

REPORT INFORMATION
  Report Type: 
  Country: None (occurrence: None)
  Receive Date: 20110628
  Receipt Date: 20110617
  Transmission Date: 20111010
  Serious: No
  Sender: FDA-Public Use
  Company Number: PHHY2011US56402

PATIENT
  Sex: Female

DRUGS (4)
  1. TASIGNA [Suspect]
     Dosage: 400 MG, BID
     Route: 048
  2. HYDROCODONE [Concomitant]
  3. ONDANSETRON [Concomitant]
  4. ESTRADIOL [Concomitant]

REACTIONS (1)
  - NAUSEA [None]
